FAERS Safety Report 13401100 (Version 1)
Quarter: 2017Q2

REPORT INFORMATION
  Report Type: Spontaneous
  Country: CN (occurrence: CN)
  Receive Date: 20170404
  Receipt Date: 20170404
  Transmission Date: 20170830
  Serious: Yes (Other)
  Sender: FDA-Public Use
  Company Number: CN-CELGENEUS-CHN-2017037423

PATIENT

DRUGS (6)
  1. CARBOPLATIN. [Concomitant]
     Active Substance: CARBOPLATIN
     Indication: NON-SMALL CELL LUNG CANCER
     Dosage: NOT PROVIDED
     Route: 065
  2. BEVACIZUMAB [Concomitant]
     Active Substance: BEVACIZUMAB
     Indication: TRANSITIONAL CELL CARCINOMA
     Dosage: 5 MILLIGRAM/KILOGRAM
     Route: 065
  3. ABRAXANE [Suspect]
     Active Substance: PACLITAXEL
     Indication: NON-SMALL CELL LUNG CANCER
     Dosage: 130 MILLIGRAM/SQ. METER
     Route: 041
     Dates: start: 20110501, end: 20140630
  4. VINFLUNINE [Concomitant]
     Active Substance: VINFLUNINE
     Indication: TRANSITIONAL CELL CARCINOMA
     Dosage: NOT PROVIDED
     Route: 065
  5. ENDOSTATIN [Concomitant]
     Active Substance: ENDOSTATIN
     Indication: TRANSITIONAL CELL CARCINOMA
     Dosage: 15 MILLIGRAM
     Route: 065
  6. ABRAXANE [Suspect]
     Active Substance: PACLITAXEL
     Indication: TRANSITIONAL CELL CARCINOMA
     Dosage: 260 MILLIGRAM/SQ. METER
     Route: 041

REACTIONS (14)
  - Leukopenia [Unknown]
  - Neutropenia [Unknown]
  - Fatigue [Unknown]
  - Decreased appetite [Unknown]
  - Alanine aminotransferase increased [Unknown]
  - Aspartate aminotransferase increased [Unknown]
  - Rash [Unknown]
  - Anaemia [Unknown]
  - Neuropathy peripheral [Unknown]
  - Nausea [Unknown]
  - Disease progression [Unknown]
  - Adverse event [Unknown]
  - Vomiting [Unknown]
  - Gastrointestinal disorder [Unknown]
